FAERS Safety Report 24907960 (Version 1)
Quarter: 2025Q1

REPORT INFORMATION
  Report Type: Spontaneous
  Country: DE (occurrence: DE)
  Receive Date: 20250131
  Receipt Date: 20250131
  Transmission Date: 20250408
  Serious: Yes (Other)
  Sender: TEVA
  Company Number: DE-EMA-DD-20210106-faizan_m-103704

PATIENT
  Sex: Female

DRUGS (1)
  1. DICLOFENAC [Suspect]
     Active Substance: DICLOFENAC
     Indication: Colitis ulcerative
     Route: 065

REACTIONS (3)
  - Polyarthritis [Unknown]
  - Colitis [Unknown]
  - Drug effect less than expected [Unknown]
